FAERS Safety Report 5024625-8 (Version None)
Quarter: 2006Q2

REPORT INFORMATION
  Report Type: 
  Country: None (occurrence: None)
  Receive Date: 20060607
  Receipt Date: 20060522
  Transmission Date: 20061013
  Serious: Yes (Hospitalization)
  Sender: FDA-Public Use
  Company Number: URSO-2006-020

PATIENT
  Age: 51 Year
  Sex: Male

DRUGS (9)
  1. DELURSAN (URSODESOXYCHOLIC ACID) [Suspect]
     Indication: CHOLANGITIS
     Dosage: 1 G FILM-COATED TABLETS PO
     Route: 048
     Dates: start: 20050401
  2. METHOTREXATE [Suspect]
     Indication: SPONDYLOARTHROPATHY
     Dosage: 10 MG PO
     Route: 048
     Dates: start: 20040815, end: 20050201
  3. REMICADE [Suspect]
     Indication: SPONDYLOARTHROPATHY
     Dosage: 400 MG IV
     Route: 042
     Dates: start: 20050224
  4. SPECIAFOLDINE (FOLIC ACID) [Concomitant]
  5. CORTAN [Concomitant]
  6. CONTRAMAL LP (TRAMADOL HYDROCHLORIDE) [Concomitant]
  7. ACETAMINOPHEN [Concomitant]
  8. FORLAX (MACROGOL) [Concomitant]
  9. LANSOPRAZOLE [Concomitant]

REACTIONS (3)
  - OPTIC NEURITIS [None]
  - SCOTOMA [None]
  - VISUAL ACUITY REDUCED [None]
